FAERS Safety Report 5846712-4 (Version None)
Quarter: 2008Q3

REPORT INFORMATION
  Report Type: 
  Country: None (occurrence: None)
  Receive Date: 20080815
  Receipt Date: 20080805
  Transmission Date: 20090109
  Serious: Yes (Other)
  Sender: FDA-Public Use
  Company Number: FR-ABBOTT-08P-056-0468822-00

PATIENT
  Age: 64 Year
  Sex: Male

DRUGS (16)
  1. DEPAKENE [Suspect]
     Indication: EPILEPSY
     Dosage: 14 ML DAILY
     Route: 048
     Dates: end: 20080608
  2. DEPAKENE [Suspect]
     Dosage: 14 ML DAILY
     Route: 048
     Dates: end: 20080608
  3. DEPAKENE [Suspect]
     Dosage: 12 ML DAILY
     Route: 048
     Dates: start: 20080609
  4. DEPAKENE [Suspect]
     Dosage: 14 ML DAILY
     Route: 048
     Dates: start: 20080101
  5. TIAPRIDE [Interacting]
     Indication: DRUG USE FOR UNKNOWN INDICATION
     Dates: start: 20080408
  6. MEPROBAMATE [Interacting]
     Indication: DRUG USE FOR UNKNOWN INDICATION
     Dates: start: 20080425
  7. ACETAMINOPHEN [Interacting]
     Indication: DRUG USE FOR UNKNOWN INDICATION
     Dates: start: 20080409
  8. RISPERIDONE [Interacting]
     Indication: DRUG USE FOR UNKNOWN INDICATION
     Dates: end: 20080423
  9. RISPERIDONE [Interacting]
     Dates: start: 20080423
  10. CLONAZEPAM [Interacting]
     Indication: DRUG USE FOR UNKNOWN INDICATION
     Dates: start: 20080512
  11. CYPROTERONE ACETATE [Interacting]
     Indication: DRUG USE FOR UNKNOWN INDICATION
     Route: 048
     Dates: start: 20080515
  12. ALENDRONATE SODIUM [Interacting]
     Indication: DRUG USE FOR UNKNOWN INDICATION
     Route: 048
     Dates: start: 20080605
  13. FOLIC ACID [Concomitant]
     Indication: DRUG USE FOR UNKNOWN INDICATION
     Route: 048
     Dates: start: 20080429
  14. MACROGOL [Concomitant]
     Indication: DRUG USE FOR UNKNOWN INDICATION
     Route: 048
     Dates: start: 20080410
  15. KETOPROFEN [Concomitant]
     Indication: DRUG USE FOR UNKNOWN INDICATION
     Route: 065
     Dates: start: 20080619
  16. CEFTRIAXONE [Concomitant]
     Indication: DRUG USE FOR UNKNOWN INDICATION
     Route: 042
     Dates: start: 20080612

REACTIONS (3)
  - CONVULSION [None]
  - DRUG INTERACTION [None]
  - DRUG LEVEL DECREASED [None]
